FAERS Safety Report 10636455 (Version 1)
Quarter: 2014Q4

REPORT INFORMATION
  Report Type: Spontaneous
  Country: GB (occurrence: None)
  Receive Date: 20141204
  Receipt Date: 20141204
  Transmission Date: 20150529
  Serious: Yes (Other)
  Sender: FDA-Public Use
  Company Number: COR_00182_2014

PATIENT
  Age: 76 Year
  Sex: Female

DRUGS (4)
  1. DOXORUBICIN [Concomitant]
     Active Substance: DOXORUBICIN
  2. GRANULOCYTE COLONY STIMULATING FACTOR [Concomitant]
     Active Substance: GRANULOCYTE COLONY-STIMULATING FACTOR NOS
  3. PACLITAXEL (PACLITAXEL) [Suspect]
     Active Substance: PACLITAXEL
     Indication: ADENOCARCINOMA
     Dates: start: 200710, end: 200802
  4. CARBOPLATIN (CARBOPLATIN) [Suspect]
     Active Substance: CARBOPLATIN
     Indication: ADENOCARCINOMA
     Dosage: 4 CYCLES AUC 5])

REACTIONS (6)
  - Neuropathy peripheral [None]
  - Malignant neoplasm progression [None]
  - Herpes zoster [None]
  - Disease recurrence [None]
  - Neutropenia [None]
  - Tooth extraction [None]
